FAERS Safety Report 15716792 (Version 1)
Quarter: 2018Q4

REPORT INFORMATION
  Report Type: Spontaneous
  Country: IT (occurrence: IT)
  Receive Date: 20181213
  Receipt Date: 20181213
  Transmission Date: 20190205
  Serious: Yes (Hospitalization)
  Sender: FDA-Public Use
  Company Number: IT-009507513-1812ITA002886

PATIENT
  Age: 65 Year
  Sex: Female

DRUGS (4)
  1. SLOWMET [Suspect]
     Active Substance: METFORMIN HYDROCHLORIDE
     Indication: TYPE 1 DIABETES MELLITUS
     Dosage: 750 MILLIGRAM, QD
     Route: 048
  2. JANUMET [Suspect]
     Active Substance: METFORMIN HYDROCHLORIDE\SITAGLIPTIN PHOSPHATE
     Indication: TYPE 1 DIABETES MELLITUS
     Dosage: 100 MILLIGRAM, QD
     Dates: start: 20171119, end: 20181119
  3. DIAMICRON [Suspect]
     Active Substance: GLICLAZIDE
     Indication: TYPE 1 DIABETES MELLITUS
     Dosage: 120 MILLIGRAM, QD
     Route: 048
  4. CONGESCOR [Concomitant]
     Active Substance: BISOPROLOL
     Dosage: 2.5 MILLIGRAM
     Route: 048

REACTIONS (4)
  - Hypoglycaemia [Recovering/Resolving]
  - Acute kidney injury [Recovering/Resolving]
  - Lactic acidosis [Recovering/Resolving]
  - Metabolic acidosis [Recovering/Resolving]

NARRATIVE: CASE EVENT DATE: 20181119
